FAERS Safety Report 7878982-5 (Version None)
Quarter: 2011Q4

REPORT INFORMATION
  Report Type: 
  Country: None (occurrence: None)
  Receive Date: 20111101
  Receipt Date: 20111022
  Transmission Date: 20120403
  Serious: Yes (Other)
  Sender: FDA-Public Use
  Company Number: PHHY2011MX94024

PATIENT
  Age: 67 Year
  Sex: Female

DRUGS (2)
  1. ZOLEDRONOC ACID [Suspect]
     Indication: OSTEOPOROSIS
     Dosage: 5 MG/ 100 ML ONCE A YEAR
     Route: 042
     Dates: start: 20111001
  2. LOSARTAN POTASSIUM [Concomitant]
     Dosage: UNK UKN, UNK
     Dates: start: 20110201

REACTIONS (1)
  - SKIN DISCOLOURATION [None]
